FAERS Safety Report 10222515 (Version 1)
Quarter: 2014Q1

REPORT INFORMATION
  Report Type: Spontaneous
  Country: US (occurrence: None)
  Receive Date: 20140306
  Receipt Date: 20140306
  Transmission Date: 20141002
  Serious: Yes (Other)
  Sender: FDA-Public Use
  Company Number: 163-21880-13050464

PATIENT
  Age: 64 Year
  Sex: Female
  Weight: 84.3 kg

DRUGS (7)
  1. REVLIMID (LENALIDOMIDE) (10 MILLIGRAM, CAPSULES) [Suspect]
     Indication: PLASMA CELL MYELOMA
     Route: 048
     Dates: start: 201107
  2. COUMADIN (WARFARIN SODIUM) [Concomitant]
  3. LOPRESSOR (METOPROLOL TARTRATE) [Concomitant]
  4. LASIX (FUROSEMIDE) [Concomitant]
  5. CARDIZEM (DILTIAZEM HYDROCHLORIDE) [Concomitant]
  6. DECADRON (DEXAMETHASONE) [Concomitant]
  7. CALCIUM (CALCIUM) [Concomitant]

REACTIONS (1)
  - Pancytopenia [None]
